FAERS Safety Report 21034514 (Version 2)
Quarter: 2022Q3

REPORT INFORMATION
  Report Type: Spontaneous
  Country: FR (occurrence: FR)
  Receive Date: 20220701
  Receipt Date: 20220817
  Transmission Date: 20221027
  Serious: Yes (Other)
  Sender: FDA-Public Use
  Company Number: FR-OTSUKA-2022_034062

PATIENT
  Age: 30 Year
  Sex: Female

DRUGS (2)
  1. TOLVAPTAN [Suspect]
     Active Substance: TOLVAPTAN
     Indication: Congenital cystic kidney disease
     Dosage: 90 MG, QD
     Route: 065
     Dates: start: 20201212
  2. TOLVAPTAN [Suspect]
     Active Substance: TOLVAPTAN
     Dosage: 30 MG, QD
     Route: 065
     Dates: start: 20201212

REACTIONS (2)
  - Hyperleukocytosis [Not Recovered/Not Resolved]
  - Pyelonephritis [Unknown]

NARRATIVE: CASE EVENT DATE: 20211201
